FAERS Safety Report 6065187-6 (Version None)
Quarter: 2009Q1

REPORT INFORMATION
  Report Type: 
  Country: None (occurrence: None)
  Receive Date: 20090204
  Receipt Date: 20090129
  Transmission Date: 20090719
  Serious: Yes (Hospitalization)
  Sender: FDA-Public Use
  Company Number: US-GILEAD-2009-0019976

PATIENT
  Sex: Female

DRUGS (10)
  1. LETAIRIS [Suspect]
     Indication: PULMONARY ARTERIAL HYPERTENSION
     Route: 048
     Dates: start: 20081231
  2. METOPROLOL TARTRATE [Concomitant]
  3. K-DUR [Concomitant]
  4. CRESTOR [Concomitant]
  5. STARLIX [Concomitant]
  6. LEXAPRO [Concomitant]
  7. NASONEX [Concomitant]
  8. VITAMIN E [Concomitant]
  9. ASCORBIC ACID [Concomitant]
  10. ASPIRIN [Concomitant]

REACTIONS (3)
  - CHRONIC OBSTRUCTIVE PULMONARY DISEASE [None]
  - DYSPNOEA [None]
  - TRANSFUSION REACTION [None]
